FAERS Safety Report 10564722 (Version 3)
Quarter: 2015Q2

REPORT INFORMATION
  Report Type: Report from Study
  Country: US (occurrence: US)
  Receive Date: 20141105
  Receipt Date: 20150527
  Transmission Date: 20150821
  Serious: Yes (Other)
  Sender: FDA-Public Use
  Company Number: US-PFIZER INC-2014298448

PATIENT
  Age: 71 Year
  Sex: Male
  Weight: 91 kg

DRUGS (11)
  1. GLIPIZIDE. [Concomitant]
     Active Substance: GLIPIZIDE
     Indication: DIABETES MELLITUS
     Dosage: 2.5 MG, 1X/DAY
     Route: 048
     Dates: start: 201101
  2. METFORMIN HCL [Suspect]
     Active Substance: METFORMIN HYDROCHLORIDE
     Indication: DIABETES MELLITUS
     Dosage: 1000 MG, 2X/DAY (BID)
     Route: 048
     Dates: start: 201008, end: 201410
  3. ASA [Suspect]
     Active Substance: ASPIRIN
     Indication: CARDIOVASCULAR EVENT PROPHYLAXIS
     Dosage: 32.5 MG, 1X/DAY
     Route: 048
     Dates: start: 20100701, end: 201410
  4. NEXIUM [Concomitant]
     Active Substance: ESOMEPRAZOLE MAGNESIUM
     Indication: PROPHYLAXIS
     Dosage: MG, 1X/DAY
     Route: 048
     Dates: start: 20121028, end: 20140930
  5. IBUPROFEN. [Suspect]
     Active Substance: IBUPROFEN
     Indication: RHEUMATOID ARTHRITIS
  6. LISINOPRIL. [Suspect]
     Active Substance: LISINOPRIL
     Indication: HYPERTENSION
     Dosage: 2.5 MG, 1X/DAY
     Route: 048
     Dates: start: 201008, end: 201410
  7. FINASTERIDE. [Concomitant]
     Active Substance: FINASTERIDE
     Indication: BENIGN PROSTATIC HYPERPLASIA
     Dosage: 5 MG, 1X/DAY
     Route: 048
     Dates: start: 199604
  8. METOPROLOL [Concomitant]
     Active Substance: METOPROLOL
     Indication: HYPERTENSION
     Dosage: 100 MG, 1X/DAY
     Route: 048
     Dates: start: 201008
  9. VENTOLIN [Concomitant]
     Active Substance: ALBUTEROL SULFATE
     Indication: CHRONIC OBSTRUCTIVE PULMONARY DISEASE
     Dosage: 1 DF (PUFF), AS NEEDED
     Route: 055
     Dates: start: 201009
  10. IBUPROFEN. [Suspect]
     Active Substance: IBUPROFEN
     Indication: OSTEOARTHRITIS
     Dosage: 800 MG, 3X/DAY
     Route: 048
     Dates: start: 20121028, end: 20140930
  11. LASIX [Concomitant]
     Active Substance: FUROSEMIDE
     Indication: OEDEMA
     Dosage: 10 MG, 1X/DAY
     Route: 048
     Dates: start: 201307

REACTIONS (3)
  - Renal disorder [Recovered/Resolved]
  - Blood creatinine increased [Recovered/Resolved]
  - Glomerular filtration rate abnormal [Recovered/Resolved]

NARRATIVE: CASE EVENT DATE: 20140923
